FAERS Safety Report 9848867 (Version 1)
Quarter: 2013Q4

REPORT INFORMATION
  Report Type: Spontaneous
  Country: US (occurrence: None)
  Receive Date: 20131224
  Receipt Date: 20131224
  Transmission Date: 20140711
  Serious: Yes (Hospitalization)
  Sender: FDA-Public Use
  Company Number: PHEH2013US019823

PATIENT
  Sex: Male

DRUGS (1)
  1. EXJADE (CGP 72670) DISPERSIBLE TABLET [Suspect]
     Indication: BLOOD PRODUCT TRANSFUSION DEPENDENT

REACTIONS (6)
  - Viral infection [None]
  - Pyrexia [None]
  - Sensory disturbance [None]
  - Balance disorder [None]
  - Mental status changes [None]
  - Chills [None]
